FAERS Safety Report 10183602 (Version 1)
Quarter: 2014Q2

REPORT INFORMATION
  Report Type: Spontaneous
  Country: US (occurrence: None)
  Receive Date: 20140425
  Receipt Date: 20140425
  Transmission Date: 20141212
  Serious: No
  Sender: FDA-Public Use
  Company Number: AP356-00433-SPO-US

PATIENT
  Age: 63 Year
  Sex: Female

DRUGS (1)
  1. BELVIQ (LOCASERIN HYDROCHLORIDE) [Suspect]
     Indication: WEIGHT DECREASED
     Route: 048
     Dates: end: 2014

REACTIONS (1)
  - Urticaria [None]
